FAERS Safety Report 5336256-0 (Version None)
Quarter: 2007Q2

REPORT INFORMATION
  Report Type: 
  Country: None (occurrence: None)
  Receive Date: 20070315
  Receipt Date: 20061221
  Transmission Date: 20071010
  Serious: Yes (Other)
  Sender: FDA-Public Use
  Company Number: BDI-008957

PATIENT
  Age: 74 Year
  Sex: Female
  Weight: 59 kg

DRUGS (5)
  1. MULTIHANCE [Suspect]
     Indication: NUCLEAR MAGNETIC RESONANCE IMAGING
     Dosage: 30 ML ONCE IV
     Route: 042
     Dates: start: 20061214, end: 20061214
  2. SORIATANE [Concomitant]
  3. ASPIRIN [Concomitant]
  4. CALCIUM CHLORIDE [Concomitant]
  5. LIPITOR [Concomitant]

REACTIONS (1)
  - HYPERSENSITIVITY [None]
